FAERS Safety Report 11468610 (Version 1)
Quarter: 2015Q3

REPORT INFORMATION
  Report Type: Spontaneous
  Country: US (occurrence: None)
  Receive Date: 20150904
  Receipt Date: 20150904
  Transmission Date: 20151125
  Serious: No
  Sender: FDA-Public Use
  Company Number: None

PATIENT
  Age: 59 Year
  Sex: Male

DRUGS (1)
  1. ENBREL [Suspect]
     Active Substance: ETANERCEPT
     Indication: PSORIATIC ARTHROPATHY
     Dosage: 50MG/ML ONCE WEEKLY SUBCUTANEOUSLY
     Route: 058
     Dates: start: 201507, end: 20150831

REACTIONS (3)
  - Amnesia [None]
  - Rash [None]
  - Speech disorder [None]

NARRATIVE: CASE EVENT DATE: 20150831
